FAERS Safety Report 10411230 (Version 2)
Quarter: 2014Q3

REPORT INFORMATION
  Report Type: Spontaneous
  Country: US (occurrence: US)
  Receive Date: 20140826
  Receipt Date: 20140826
  Transmission Date: 20150326
  Serious: No
  Sender: FDA-Public Use
  Company Number: US-ASTRAZENECA-2014SE19003

PATIENT
  Age: 42 Year
  Sex: Male
  Weight: 102.1 kg

DRUGS (4)
  1. SINGULAIR [Concomitant]
     Active Substance: MONTELUKAST SODIUM
     Indication: CHRONIC OBSTRUCTIVE PULMONARY DISEASE
     Dosage: NR NR
  2. SYMBICORT [Suspect]
     Active Substance: BUDESONIDE\FORMOTEROL FUMARATE DIHYDRATE
     Indication: ASTHMA
     Dosage: 160/4.5,  320MCG TWO PUFFS BID
     Route: 055
     Dates: start: 2007, end: 20140317
  3. UNSPECIFIIED MS MEDICATIONS [Suspect]
     Active Substance: UNSPECIFIED INGREDIENT
     Route: 065
  4. SPIRIVA [Concomitant]
     Active Substance: TIOTROPIUM BROMIDE MONOHYDRATE
     Indication: CHRONIC OBSTRUCTIVE PULMONARY DISEASE
     Dosage: NR NR
     Route: 055

REACTIONS (4)
  - Intentional product misuse [Not Recovered/Not Resolved]
  - Vitamin D decreased [Unknown]
  - Pain [Unknown]
  - Pyrexia [Unknown]

NARRATIVE: CASE EVENT DATE: 2012
